FAERS Safety Report 8846301 (Version 2)
Quarter: 2012Q4

REPORT INFORMATION
  Report Type: 
  Country: US (occurrence: US)
  Receive Date: 20121018
  Receipt Date: 20121231
  Transmission Date: 20130627
  Serious: Yes (Other)
  Sender: FDA-Public Use
  Company Number: US-BIOGENIDEC-2012BI043785

PATIENT
  Age: 30 Year
  Sex: Female

DRUGS (6)
  1. TYSABRI [Suspect]
     Indication: MULTIPLE SCLEROSIS
     Route: 042
     Dates: start: 200810, end: 200911
  2. TYSABRI [Suspect]
     Indication: MULTIPLE SCLEROSIS
     Dates: start: 201012, end: 20120920
  3. BACLOFEN [Concomitant]
  4. AMPYRA [Concomitant]
  5. WELLBUTRIN [Concomitant]
  6. ORAL CONTRACEPTIVE [Concomitant]

REACTIONS (1)
  - Myelofibrosis [Not Recovered/Not Resolved]
